FAERS Safety Report 4748561-7 (Version None)
Quarter: 2005Q3

REPORT INFORMATION
  Report Type: 
  Country: None (occurrence: None)
  Receive Date: 20050818
  Receipt Date: 20050818
  Transmission Date: 20060218
  Serious: No
  Sender: FDA-Public Use
  Company Number: None

PATIENT
  Sex: Male

DRUGS (3)
  1. GEODON [Suspect]
     Indication: ANTIDEPRESSANT THERAPY
     Dosage: 20MG  QDAY  ORAL
     Route: 048
     Dates: start: 20050629, end: 20050727
  2. WELLBUTRIN [Concomitant]
  3. MVI/MINERALS [Concomitant]

REACTIONS (3)
  - BRUXISM [None]
  - CHOREOATHETOSIS [None]
  - DYSKINESIA [None]
